FAERS Safety Report 8432008-3 (Version None)
Quarter: 2012Q2

REPORT INFORMATION
  Report Type: 
  Country: None (occurrence: None)
  Receive Date: 20120613
  Receipt Date: 20110620
  Transmission Date: 20120825
  Serious: No
  Sender: FDA-Public Use
  Company Number: US-ASTRAZENECA-2010SE46695

PATIENT
  Age: 65 Year
  Sex: Female

DRUGS (9)
  1. RHINOCORT [Suspect]
     Indication: HYPERSENSITIVITY
     Dosage: TWO SPRAYS PER DAY
     Route: 045
  2. NEXIUM [Suspect]
     Route: 048
  3. CRESTOR [Suspect]
     Route: 048
     Dates: start: 20080908
  4. ACCOLATE [Suspect]
     Route: 048
  5. RHINOCORT [Suspect]
     Dosage: FOUR SPRAYS PER DAY
     Route: 045
  6. SYMBICORT [Suspect]
     Route: 055
  7. ATACAND [Suspect]
     Route: 048
  8. BONIVA [Concomitant]
  9. ATACAND HCT [Suspect]
     Dosage: 32/12.5 MG
     Route: 048

REACTIONS (17)
  - COUGH [None]
  - PAIN [None]
  - FALL [None]
  - FEELING ABNORMAL [None]
  - MALAISE [None]
  - DEPRESSION [None]
  - MUSCULAR WEAKNESS [None]
  - MUSCLE SPASMS [None]
  - NASAL DRYNESS [None]
  - RHINORRHOEA [None]
  - DRUG HYPERSENSITIVITY [None]
  - DRUG DOSE OMISSION [None]
  - DIZZINESS [None]
  - HEADACHE [None]
  - SINUSITIS [None]
  - INCORRECT DOSE ADMINISTERED [None]
  - HYPERSOMNIA [None]
